FAERS Safety Report 5896541-0 (Version None)
Quarter: 2008Q3

REPORT INFORMATION
  Report Type: 
  Country: None (occurrence: None)
  Receive Date: 20080924
  Receipt Date: 20070904
  Transmission Date: 20090109
  Serious: Yes (Hospitalization)
  Sender: FDA-Public Use
  Company Number: US-BAYER-200712371BWH

PATIENT
  Age: 48 Year
  Sex: Female

DRUGS (3)
  1. AVELOX [Suspect]
     Indication: CHRONIC SINUSITIS
     Route: 048
     Dates: start: 20070204, end: 20070214
  2. PROVENTIL-HFA [Concomitant]
  3. PREDNISONE [Concomitant]

REACTIONS (2)
  - OEDEMA PERIPHERAL [None]
  - RASH [None]
